FAERS Safety Report 7570012-8 (Version None)
Quarter: 2011Q2

REPORT INFORMATION
  Report Type: 
  Country: None (occurrence: None)
  Receive Date: 20110622
  Receipt Date: 20110622
  Transmission Date: 20111010
  Serious: Yes (Life-Threatening, Other)
  Sender: FDA-Public Use
  Company Number: None

PATIENT
  Age: 49 Year
  Sex: Female
  Weight: 75.7507 kg

DRUGS (1)
  1. CIPROFLOXACIN [Suspect]
     Indication: KIDNEY INFECTION
     Dosage: 1 TWICE DAILY PO
     Route: 048
     Dates: start: 20110416, end: 20110421

REACTIONS (7)
  - STEVENS-JOHNSON SYNDROME [None]
  - METABOLIC ACIDOSIS [None]
  - LIVER INJURY [None]
  - ENTHESOPATHY [None]
  - TENDONITIS [None]
  - RENAL DISORDER [None]
  - TENDON RUPTURE [None]
